FAERS Safety Report 11141489 (Version 2)
Quarter: 2017Q3

REPORT INFORMATION
  Report Type: Spontaneous
  Country: US (occurrence: US)
  Receive Date: 20150525
  Receipt Date: 20170920
  Transmission Date: 20171127
  Serious: Yes (Other)
  Sender: FDA-Public Use
  Company Number: US-JNJFOC-20120509161

PATIENT
  Age: 51 Year
  Sex: Female
  Weight: 232 kg

DRUGS (43)
  1. RISPERDAL [Suspect]
     Active Substance: RISPERIDONE
     Indication: PSYCHOTIC DISORDER
     Route: 065
     Dates: start: 200112
  2. RISPERDAL [Suspect]
     Active Substance: RISPERIDONE
     Indication: PSYCHOTIC DISORDER
     Route: 065
     Dates: start: 199904
  3. IRON [Concomitant]
     Active Substance: IRON
     Route: 065
  4. RISPERIDONE. [Suspect]
     Active Substance: RISPERIDONE
     Indication: SCHIZOPHRENIA
     Route: 065
     Dates: start: 20051205
  5. GEODON [Suspect]
     Active Substance: ZIPRASIDONE HYDROCHLORIDE\ZIPRASIDONE MESYLATE
     Indication: PRODUCT USED FOR UNKNOWN INDICATION
     Route: 030
  6. GEODON [Concomitant]
     Active Substance: ZIPRASIDONE HYDROCHLORIDE\ZIPRASIDONE MESYLATE
     Indication: AGGRESSION
     Route: 030
     Dates: start: 20051201
  7. AN UNKNOWN MEDICATION [Concomitant]
     Active Substance: UNSPECIFIED INGREDIENT
     Indication: AGITATION
     Route: 048
     Dates: start: 20051201
  8. RISPERDAL [Suspect]
     Active Substance: RISPERIDONE
     Indication: THINKING ABNORMAL
     Route: 065
     Dates: start: 1998
  9. RISPERDAL [Suspect]
     Active Substance: RISPERIDONE
     Indication: THINKING ABNORMAL
     Route: 065
  10. RISPERDAL [Suspect]
     Active Substance: RISPERIDONE
     Indication: THINKING ABNORMAL
     Route: 065
     Dates: start: 1997
  11. RISPERDAL [Suspect]
     Active Substance: RISPERIDONE
     Indication: THINKING ABNORMAL
     Route: 065
     Dates: start: 20051206
  12. RISPERDAL [Suspect]
     Active Substance: RISPERIDONE
     Indication: PSYCHOTIC DISORDER
     Route: 065
     Dates: start: 1998
  13. RISPERDAL [Suspect]
     Active Substance: RISPERIDONE
     Indication: PSYCHOTIC DISORDER
     Route: 065
     Dates: start: 20051206
  14. DEPAKOTE [Suspect]
     Active Substance: DIVALPROEX SODIUM
     Indication: PSYCHOTIC DISORDER
     Route: 065
     Dates: start: 199812
  15. AN UNKNOWN MEDICATION [Concomitant]
     Active Substance: UNSPECIFIED INGREDIENT
     Indication: AGITATION
     Route: 048
     Dates: start: 20051201
  16. AN UNKNOWN MEDICATION [Concomitant]
     Active Substance: UNSPECIFIED INGREDIENT
     Indication: AGGRESSION
     Route: 048
     Dates: start: 20051201
  17. AN UNKNOWN MEDICATION [Concomitant]
     Active Substance: UNSPECIFIED INGREDIENT
     Indication: AGITATION
     Route: 030
     Dates: start: 20051201
  18. RISPERDAL [Suspect]
     Active Substance: RISPERIDONE
     Indication: THINKING ABNORMAL
     Route: 065
     Dates: start: 199910
  19. RISPERDAL [Suspect]
     Active Substance: RISPERIDONE
     Indication: THINKING ABNORMAL
     Route: 065
     Dates: start: 199904
  20. LITHIUM. [Suspect]
     Active Substance: LITHIUM
     Indication: MOOD ALTERED
     Route: 065
     Dates: start: 20051203
  21. GEODON [Concomitant]
     Active Substance: ZIPRASIDONE HYDROCHLORIDE\ZIPRASIDONE MESYLATE
     Indication: AGITATION
     Route: 030
     Dates: start: 20051201
  22. AN UNKNOWN MEDICATION [Concomitant]
     Active Substance: UNSPECIFIED INGREDIENT
     Indication: AGGRESSION
     Route: 048
     Dates: start: 20051201
  23. RISPERDAL [Suspect]
     Active Substance: RISPERIDONE
     Indication: PSYCHOTIC DISORDER
     Route: 065
     Dates: start: 1997
  24. RISPERDAL [Suspect]
     Active Substance: RISPERIDONE
     Indication: PSYCHOTIC DISORDER
     Route: 065
  25. AN UNKNOWN MEDICATION [Concomitant]
     Active Substance: UNSPECIFIED INGREDIENT
     Indication: AGGRESSION
     Route: 048
     Dates: start: 20051201
  26. COGENTIN [Concomitant]
     Active Substance: BENZTROPINE MESYLATE
     Route: 065
  27. RISPERDAL [Suspect]
     Active Substance: RISPERIDONE
     Indication: PSYCHOTIC DISORDER
     Route: 065
  28. RISPERDAL [Suspect]
     Active Substance: RISPERIDONE
     Indication: PSYCHOTIC DISORDER
     Route: 065
  29. RISPERIDONE. [Suspect]
     Active Substance: RISPERIDONE
     Indication: BIPOLAR DISORDER
     Route: 065
     Dates: start: 20051205
  30. LITHIUM. [Suspect]
     Active Substance: LITHIUM
     Indication: MOOD ALTERED
     Route: 065
     Dates: start: 20051205
  31. GEODON [Suspect]
     Active Substance: ZIPRASIDONE HYDROCHLORIDE\ZIPRASIDONE MESYLATE
     Indication: PRODUCT USED FOR UNKNOWN INDICATION
     Route: 048
     Dates: start: 20051203
  32. RISPERDAL [Suspect]
     Active Substance: RISPERIDONE
     Indication: THINKING ABNORMAL
     Route: 065
  33. RISPERDAL [Suspect]
     Active Substance: RISPERIDONE
     Indication: THINKING ABNORMAL
     Route: 065
  34. RISPERDAL [Suspect]
     Active Substance: RISPERIDONE
     Indication: PSYCHOTIC DISORDER
     Route: 065
     Dates: start: 199910
  35. DEPAKOTE [Suspect]
     Active Substance: DIVALPROEX SODIUM
     Indication: PSYCHOTIC DISORDER
     Route: 065
     Dates: start: 200104
  36. DEPAKOTE [Suspect]
     Active Substance: DIVALPROEX SODIUM
     Indication: PSYCHOTIC DISORDER
     Route: 065
  37. AN UNKNOWN MEDICATION [Concomitant]
     Active Substance: UNSPECIFIED INGREDIENT
     Indication: AGGRESSION
     Route: 030
     Dates: start: 20051201
  38. AN UNKNOWN MEDICATION [Concomitant]
     Active Substance: UNSPECIFIED INGREDIENT
     Indication: AGGRESSION
     Route: 030
     Dates: start: 20051201
  39. AN UNKNOWN MEDICATION [Concomitant]
     Active Substance: UNSPECIFIED INGREDIENT
     Indication: AGITATION
     Route: 030
     Dates: start: 20051201
  40. RISPERDAL [Suspect]
     Active Substance: RISPERIDONE
     Indication: THINKING ABNORMAL
     Route: 065
     Dates: start: 200112
  41. LITHIUM. [Suspect]
     Active Substance: LITHIUM
     Indication: MOOD ALTERED
     Route: 065
  42. GEODON [Suspect]
     Active Substance: ZIPRASIDONE HYDROCHLORIDE\ZIPRASIDONE MESYLATE
     Indication: PRODUCT USED FOR UNKNOWN INDICATION
     Route: 030
     Dates: start: 20051203
  43. AN UNKNOWN MEDICATION [Concomitant]
     Active Substance: UNSPECIFIED INGREDIENT
     Indication: AGITATION
     Route: 048
     Dates: start: 20051201

REACTIONS (12)
  - Infertility female [Unknown]
  - Alopecia [Unknown]
  - Aspartate aminotransferase increased [Unknown]
  - Anorgasmia [Unknown]
  - Delusion [Recovered/Resolved]
  - Parkinsonian rest tremor [Unknown]
  - Delusion of grandeur [Recovered/Resolved]
  - Hallucination, auditory [Recovered/Resolved]
  - Amenorrhoea [Unknown]
  - Weight increased [Unknown]
  - Hormone level abnormal [Unknown]
  - Alanine aminotransferase increased [Unknown]

NARRATIVE: CASE EVENT DATE: 1992
